FAERS Safety Report 5573899-3 (Version None)
Quarter: 2007Q4

REPORT INFORMATION
  Report Type: 
  Country: None (occurrence: None)
  Receive Date: 20071212
  Receipt Date: 20071127
  Transmission Date: 20080405
  Serious: Yes (Death, Other)
  Sender: FDA-Public Use
  Company Number: 164725ISR

PATIENT
  Sex: 0

DRUGS (2)
  1. DICLOFENAC [Suspect]
     Indication: PUBIC PAIN
     Dosage: 150 MG (50 MG, 3 IN 1 D) TRANSPLACENTAL
     Route: 064
     Dates: start: 20070730, end: 20070807
  2. PANDEINE CO [Suspect]
     Indication: PUBIC PAIN
     Dosage: TRANSPLACENTAL
     Route: 064
     Dates: start: 20070807, end: 20070810

REACTIONS (2)
  - DRUG EXPOSURE DURING PREGNANCY [None]
  - INTRA-UTERINE DEATH [None]
